FAERS Safety Report 7139002-3 (Version None)
Quarter: 2010Q4

REPORT INFORMATION
  Report Type: 
  Country: None (occurrence: None)
  Receive Date: 20101206
  Receipt Date: 20101129
  Transmission Date: 20110411
  Serious: Yes (Hospitalization)
  Sender: FDA-Public Use
  Company Number: A0896743A

PATIENT
  Age: 55 Year
  Sex: Male

DRUGS (4)
  1. ZOFRAN [Suspect]
     Route: 065
     Dates: start: 20050630
  2. DIOVAN [Concomitant]
  3. NEXIUM [Concomitant]
  4. INSULIN [Concomitant]

REACTIONS (5)
  - ANAPHYLACTIC REACTION [None]
  - MEDICAL INDUCTION OF COMA [None]
  - SURGERY [None]
  - SUTURE RUPTURE [None]
  - SWELLING [None]
